FAERS Safety Report 6343313-9 (Version None)
Quarter: 2009Q3

REPORT INFORMATION
  Report Type: 
  Country: None (occurrence: None)
  Receive Date: 20090908
  Receipt Date: 20090828
  Transmission Date: 20100115
  Serious: Yes (Other)
  Sender: FDA-Public Use
  Company Number: PHHY2008AU18050

PATIENT
  Sex: Male

DRUGS (1)
  1. CLOZARIL [Suspect]
     Dosage: 1000 MG
     Dates: start: 19980702, end: 20090825

REACTIONS (5)
  - HEPATITIS C [None]
  - LYMPHOCYTOSIS [None]
  - NEUTROPENIA [None]
  - PANCYTOPENIA [None]
  - TUBERCULOSIS [None]
